FAERS Safety Report 6667613-8 (Version None)
Quarter: 2010Q2

REPORT INFORMATION
  Report Type: 
  Country: None (occurrence: None)
  Receive Date: 20100405
  Receipt Date: 20100327
  Transmission Date: 20101027
  Serious: Yes (Other)
  Sender: FDA-Public Use
  Company Number: DE-ABBOTT-10P-062-0635227-00

PATIENT
  Sex: Male

DRUGS (1)
  1. KALETRA [Suspect]
     Indication: ACCIDENTAL EXPOSURE
     Dates: start: 20100327, end: 20100327

REACTIONS (2)
  - ACCIDENTAL EXPOSURE [None]
  - VOMITING [None]
